FAERS Safety Report 25297623 (Version 1)
Quarter: 2025Q2

REPORT INFORMATION
  Report Type: Spontaneous
  Country: IN (occurrence: IN)
  Receive Date: 20250511
  Receipt Date: 20250511
  Transmission Date: 20250716
  Serious: Yes (Other)
  Sender: ALEXION PHARMACEUTICALS
  Company Number: IN-AstraZeneca-CH-00864154A

PATIENT

DRUGS (1)
  1. CAPIVASERTIB [Suspect]
     Active Substance: CAPIVASERTIB
     Indication: Product used for unknown indication
     Route: 065

REACTIONS (7)
  - Breast neoplasm [Unknown]
  - Tumour pain [Unknown]
  - Diarrhoea [Recovered/Resolved]
  - Axillary pain [Unknown]
  - Breast pain [Unknown]
  - Sleep disorder due to general medical condition, insomnia type [Unknown]
  - Decreased activity [Unknown]
